FAERS Safety Report 16868384 (Version 10)
Quarter: 2022Q1

REPORT INFORMATION
  Report Type: Spontaneous
  Country: US (occurrence: US)
  Receive Date: 20190930
  Receipt Date: 20220118
  Transmission Date: 20220423
  Serious: No
  Sender: FDA-Public Use
  Company Number: US-PFIZER INC-2019415692

PATIENT
  Age: 68 Year
  Sex: Female

DRUGS (10)
  1. IBRANCE [Suspect]
     Active Substance: PALBOCICLIB
     Indication: Breast cancer female
     Dosage: 125 MG, CYCLIC (TAKE 1 TABLET BY MOUTH ONCE DAILY)
     Route: 048
     Dates: start: 20190920
  2. IBRANCE [Suspect]
     Active Substance: PALBOCICLIB
     Dosage: 100 MG, CYCLIC (1 TABLET BY MOUTH DAILY)
     Route: 048
     Dates: start: 201909
  3. IBRANCE [Suspect]
     Active Substance: PALBOCICLIB
     Dosage: 75 MG, CYCLIC(TAKE 1 TABLET BY MOUTH DAILY)
     Route: 048
  4. INSULIN LISPRO [Concomitant]
     Active Substance: INSULIN LISPRO
  5. FASLODEX [Concomitant]
     Active Substance: FULVESTRANT
  6. LOSARTAN POTASSIUM [Concomitant]
     Active Substance: LOSARTAN POTASSIUM
  7. DESOXIMETASONE [Concomitant]
     Active Substance: DESOXIMETASONE
  8. METFORMIN HYDROCHLORIDE [Concomitant]
     Active Substance: METFORMIN HYDROCHLORIDE
  9. OZEMPIC [Concomitant]
     Active Substance: SEMAGLUTIDE
  10. FARXIGA [Concomitant]
     Active Substance: DAPAGLIFLOZIN PROPANEDIOL

REACTIONS (16)
  - Product dose omission issue [Unknown]
  - Diarrhoea [Recovering/Resolving]
  - Stomatitis [Unknown]
  - Constipation [Unknown]
  - Anal pruritus [Unknown]
  - Fatigue [Unknown]
  - Dizziness [Unknown]
  - Alopecia [Unknown]
  - Blood glucose decreased [Unknown]
  - Paraesthesia [Unknown]
  - Full blood count abnormal [Unknown]
  - White blood cell count decreased [Unknown]
  - Pruritus [Unknown]
  - Vulvovaginal mycotic infection [Recovered/Resolved]
  - Vulvovaginal pruritus [Unknown]
  - Pruritus [Unknown]

NARRATIVE: CASE EVENT DATE: 20190101
